FAERS Safety Report 4345810-4 (Version None)
Quarter: 2004Q2

REPORT INFORMATION
  Report Type: 
  Country: None (occurrence: None)
  Receive Date: 20040424
  Receipt Date: 20040419
  Transmission Date: 20050107
  Serious: Yes (Other)
  Sender: FDA-Public Use
  Company Number: JP-MERCK-0404USA01785

PATIENT
  Age: 69 Year
  Sex: Male

DRUGS (15)
  1. ALLOPURINOL [Suspect]
     Route: 048
     Dates: start: 20030718, end: 20030801
  2. AMLODIPINE BESYLATE [Concomitant]
     Route: 065
  3. ATENOLOL [Concomitant]
     Route: 065
  4. BETHANECHOL CHLORIDE [Concomitant]
     Route: 065
  5. DOXAZOSIN MESYLATE [Concomitant]
     Route: 065
  6. FUROSEMIDE [Concomitant]
     Route: 065
  7. ALDOMET-M [Suspect]
     Route: 048
     Dates: start: 20030717, end: 20030722
  8. ALDOMET-M [Suspect]
     Route: 048
     Dates: start: 20030723, end: 20030729
  9. ALDOMET-M [Suspect]
     Route: 048
     Dates: start: 20030730, end: 20030801
  10. NIFEDIPINE [Concomitant]
     Route: 065
  11. PROPRANOLOL HYDROCHLORIDE [Concomitant]
     Route: 065
  12. SENNA [Concomitant]
     Route: 065
  13. SENNOSIDES [Concomitant]
     Route: 065
  14. SODIUM FERROUS CITRATE [Concomitant]
     Route: 065
  15. TAMSULOSIN HYDROCHLORIDE [Concomitant]
     Route: 065

REACTIONS (7)
  - BLOOD CREATINE PHOSPHOKINASE INCREASED [None]
  - MUSCULOSKELETAL STIFFNESS [None]
  - MYALGIA [None]
  - MYOSITIS [None]
  - PARKINSONIAN GAIT [None]
  - PHARYNGOLARYNGEAL PAIN [None]
  - PYREXIA [None]
